FAERS Safety Report 13339718 (Version 1)
Quarter: 2017Q1

REPORT INFORMATION
  Report Type: Report from Study
  Country: None (occurrence: US)
  Receive Date: 20170315
  Receipt Date: 20170315
  Transmission Date: 20170428
  Serious: Yes (Other)
  Sender: FDA-Public Use
  Company Number: US-ABBVIE-17P-163-1903962-00

PATIENT
  Age: 81 Year
  Sex: Female

DRUGS (9)
  1. VENCLEXTA [Suspect]
     Active Substance: VENETOCLAX
     Dosage: DAY 3
     Route: 048
  2. VENCLEXTA [Suspect]
     Active Substance: VENETOCLAX
     Dosage: DAY 5
     Route: 048
  3. VENCLEXTA [Suspect]
     Active Substance: VENETOCLAX
     Dosage: DAY 7
     Route: 048
  4. LEVOTHYROXINE. [Concomitant]
     Active Substance: LEVOTHYROXINE
     Indication: THYROID DISORDER
     Route: 048
  5. ALLOPURINOL. [Concomitant]
     Active Substance: ALLOPURINOL
     Indication: PROPHYLAXIS
  6. VENCLEXTA [Suspect]
     Active Substance: VENETOCLAX
     Dosage: DAY 6
     Route: 048
  7. VENCLEXTA [Suspect]
     Active Substance: VENETOCLAX
     Indication: ACUTE MYELOID LEUKAEMIA
     Dosage: ON DAY 2, TOOK 1 PILL
     Route: 048
     Dates: start: 201702, end: 201702
  8. VENCLEXTA [Suspect]
     Active Substance: VENETOCLAX
     Dosage: DAY 4
     Route: 048
  9. ALLOPURINOL. [Concomitant]
     Active Substance: ALLOPURINOL
     Indication: RENAL DISORDER
     Route: 048

REACTIONS (3)
  - Enuresis [Not Recovered/Not Resolved]
  - Asthenia [Not Recovered/Not Resolved]
  - Transfusion [Not Recovered/Not Resolved]

NARRATIVE: CASE EVENT DATE: 20170303
